FAERS Safety Report 10603156 (Version 3)
Quarter: 2015Q1

REPORT INFORMATION
  Report Type: Spontaneous
  Country: US (occurrence: US)
  Receive Date: 20141124
  Receipt Date: 20150220
  Transmission Date: 20150720
  Serious: No
  Sender: FDA-Public Use
  Company Number: US-PFIZER INC-2014093880

PATIENT
  Age: 49 Year
  Sex: Male

DRUGS (31)
  1. LYRICA [Suspect]
     Active Substance: PREGABALIN
     Indication: FIBROMYALGIA
  2. DELTAPRIM [Concomitant]
     Dosage: UNK
  3. ARTEMISININ [Concomitant]
     Active Substance: DIETARY SUPPLEMENT
     Dosage: UNK
  4. LEUCOVORIN [Concomitant]
     Active Substance: LEUCOVORIN
     Dosage: UNK
  5. TRAZODONE [Concomitant]
     Active Substance: TRAZODONE HYDROCHLORIDE
     Dosage: UNK
  6. LACTATED RINGERS [Concomitant]
     Active Substance: CALCIUM CHLORIDE\POTASSIUM CHLORIDE\SODIUM CHLORIDE\SODIUM LACTATE
     Dosage: UNK
     Route: 042
  7. LYRICA [Suspect]
     Active Substance: PREGABALIN
     Indication: LYME DISEASE
     Dosage: 50 MG, DAILY (EACH DAY)
  8. MEROPENEM. [Concomitant]
     Active Substance: MEROPENEM
     Dosage: UNK
     Route: 042
  9. XYLITOL [Concomitant]
     Active Substance: XYLITOL
     Dosage: UNK
  10. ACETYL L-CARNITINE [Concomitant]
     Dosage: UNK
  11. COARTEM [Concomitant]
     Active Substance: ARTEMETHER\LUMEFANTRINE
     Dosage: UNK
  12. LACTOFERRIN [Concomitant]
     Active Substance: LACTOFERRIN
     Dosage: UNK
  13. DIFLUCAN [Concomitant]
     Active Substance: FLUCONAZOLE
     Dosage: UNK
  14. MAGNESIUM MALATE [Concomitant]
     Dosage: UNK
  15. VITAMIN C [Concomitant]
     Active Substance: ASCORBIC ACID
     Dosage: UNK
  16. TIGECYCLINE [Concomitant]
     Active Substance: TIGECYCLINE
     Dosage: UNK
     Route: 042
  17. MEPRON [Concomitant]
     Active Substance: ATOVAQUONE
     Dosage: UNK
  18. VITAMIN D [Concomitant]
     Active Substance: CHOLECALCIFEROL
     Dosage: UNK
  19. DHEA [Concomitant]
     Active Substance: DEHYDROEPIANDROSTERONE-3-SULFATE SODIUM
     Dosage: UNK
  20. METHYLFOLATE [Concomitant]
  21. N-ACETYLCYSTEINE [Concomitant]
     Active Substance: ACETYLCYSTEINE
     Dosage: UNK
  22. PROBIOTICS [Concomitant]
     Active Substance: PROBIOTICS NOS
     Dosage: UNK
  23. SEPTRA DS [Concomitant]
     Active Substance: SULFAMETHOXAZOLE\TRIMETHOPRIM
     Dosage: UNK
  24. FLAGYL [Concomitant]
     Active Substance: METRONIDAZOLE\METRONIDAZOLE HYDROCHLORIDE
     Dosage: UNK
  25. FISH OIL [Concomitant]
     Active Substance: FISH OIL
     Dosage: UNK
  26. ADVIL [Concomitant]
     Active Substance: IBUPROFEN
     Dosage: UNK
  27. CIPRO [Concomitant]
     Active Substance: CIPROFLOXACIN HYDROCHLORIDE
     Dosage: UNK
     Route: 042
  28. ARMOUR THYROID [Concomitant]
     Active Substance: THYROID, PORCINE\THYROID, UNSPECIFIED
     Dosage: UNK
  29. LAMICTAL [Concomitant]
     Active Substance: LAMOTRIGINE
     Dosage: UNK
  30. KLONOPIN [Concomitant]
     Active Substance: CLONAZEPAM
     Dosage: UNK
  31. THIOCTIC ACID [Concomitant]
     Active Substance: .ALPHA.-LIPOIC ACID, (+/-)-
     Dosage: UNK

REACTIONS (2)
  - Malaise [Unknown]
  - Product use issue [Unknown]

NARRATIVE: CASE EVENT DATE: 2014
